FAERS Safety Report 19742811 (Version 1)
Quarter: 2021Q3

REPORT INFORMATION
  Report Type: Spontaneous
  Country: US (occurrence: US)
  Receive Date: 20210825
  Receipt Date: 20210825
  Transmission Date: 20211014
  Serious: Yes (Hospitalization, Other)
  Sender: FDA-Public Use
  Company Number: US-ACCORD-236042

PATIENT
  Age: 86 Year
  Sex: Female

DRUGS (3)
  1. HYDROXYCHLOROQUINE [Suspect]
     Active Substance: HYDROXYCHLOROQUINE
     Indication: SJOGREN^S SYNDROME
  2. OXYGEN. [Concomitant]
     Active Substance: OXYGEN
     Indication: RESPIRATORY FAILURE
  3. PREDNISONE. [Suspect]
     Active Substance: PREDNISONE
     Indication: SJOGREN^S SYNDROME

REACTIONS (9)
  - Oral candidiasis [Recovering/Resolving]
  - Blindness [Recovering/Resolving]
  - Chorioretinitis [Recovering/Resolving]
  - Uveitis [Recovering/Resolving]
  - Eye abscess [Recovering/Resolving]
  - Candida endophthalmitis [Recovering/Resolving]
  - Nocardiosis [Recovering/Resolving]
  - Off label use [Unknown]
  - Vasogenic cerebral oedema [Recovering/Resolving]
